FAERS Safety Report 21191739 (Version 16)
Quarter: 2024Q3

REPORT INFORMATION
  Report Type: Report from Study
  Country: US (occurrence: US)
  Receive Date: 20220809
  Receipt Date: 20240906
  Transmission Date: 20241017
  Serious: Yes (Hospitalization)
  Sender: NOVARTIS
  Company Number: US-NOVARTISTESTPH-NVSC2022US179774

PATIENT
  Age: 45 Year
  Sex: Male

DRUGS (3)
  1. KESIMPTA [Suspect]
     Active Substance: OFATUMUMAB
     Indication: Multiple sclerosis
     Dosage: UNK, QMO
     Route: 058
     Dates: start: 20220707
  2. KESIMPTA [Suspect]
     Active Substance: OFATUMUMAB
     Indication: Relapsing multiple sclerosis
     Dosage: 20 MG, QMO
     Route: 058
     Dates: start: 20220715
  3. KESIMPTA [Suspect]
     Active Substance: OFATUMUMAB
     Dosage: 0.4 ML, UNKNOWN
     Route: 065

REACTIONS (13)
  - Haemorrhage [Unknown]
  - Complication associated with device [Unknown]
  - Medical device site infection [Not Recovered/Not Resolved]
  - Sepsis [Recovering/Resolving]
  - Muscle spasms [Unknown]
  - Skin ulcer [Recovered/Resolved]
  - Injury [Recovered/Resolved]
  - Blister [Recovered/Resolved]
  - Dyskinesia [Unknown]
  - Joint stiffness [Unknown]
  - Injection site scar [Unknown]
  - Respiratory tract infection [Not Recovered/Not Resolved]
  - Oral candidiasis [Not Recovered/Not Resolved]

NARRATIVE: CASE EVENT DATE: 20220701
